FAERS Safety Report 4353375-6 (Version None)
Quarter: 2004Q2

REPORT INFORMATION
  Report Type: 
  Country: None (occurrence: None)
  Receive Date: 20040504
  Receipt Date: 20040504
  Transmission Date: 20050107
  Serious: Yes (Hospitalization)
  Sender: FDA-Public Use
  Company Number: None

PATIENT
  Age: 40 Year
  Sex: Female
  Weight: 75.7 kg

DRUGS (7)
  1. ADRIAMYCIN PFS [Suspect]
     Indication: BREAST CANCER
     Dosage: 60 MG/M2 Q2 WKS (IV)
     Route: 042
     Dates: start: 20040325
  2. CYTOXAN [Suspect]
     Indication: BREAST CANCER
     Dosage: 600 MG/M2 Q 2 WKS (IV)
     Route: 042
     Dates: start: 20040325
  3. DECADRON [Concomitant]
  4. COMPAZINE [Concomitant]
  5. ATIVAN [Concomitant]
  6. ZOFRAN [Concomitant]
  7. NEULASTA [Concomitant]

REACTIONS (1)
  - VOMITING [None]
